FAERS Safety Report 14273492 (Version 1)
Quarter: 2017Q4

REPORT INFORMATION
  Report Type: Spontaneous
  Country: US (occurrence: US)
  Receive Date: 20171211
  Receipt Date: 20171211
  Transmission Date: 20180321
  Serious: Yes (Other)
  Sender: FDA-Public Use
  Company Number: US-ASTRAZENECA-2017SF25315

PATIENT
  Age: 37 Year
  Sex: Female
  Weight: 49 kg

DRUGS (1)
  1. SEROQUEL [Suspect]
     Active Substance: QUETIAPINE FUMARATE
     Indication: BIPOLAR DISORDER
     Route: 048
     Dates: start: 2013, end: 20160502

REACTIONS (10)
  - Ear neoplasm [Unknown]
  - Optic nerve injury [Not Recovered/Not Resolved]
  - Brain neoplasm [Unknown]
  - Hypoacusis [Not Recovered/Not Resolved]
  - Deafness neurosensory [Not Recovered/Not Resolved]
  - Malaise [Unknown]
  - Ill-defined disorder [Unknown]
  - Memory impairment [Unknown]
  - Fatigue [Recovered/Resolved]
  - Vomiting [Recovered/Resolved]

NARRATIVE: CASE EVENT DATE: 2016
